FAERS Safety Report 8612984-6 (Version None)
Quarter: 2012Q3

REPORT INFORMATION
  Report Type: 
  Country: None (occurrence: None)
  Receive Date: 20120822
  Receipt Date: 20120816
  Transmission Date: 20120928
  Serious: Yes (Other)
  Sender: FDA-Public Use
  Company Number: US-UCBSA-063362

PATIENT
  Age: 68 Year
  Sex: Female
  Weight: 80.7 kg

DRUGS (8)
  1. CIMZIA [Suspect]
     Indication: CROHN'S DISEASE
     Route: 058
     Dates: start: 20120301, end: 20120502
  2. LEVOTHYROXINE SODIUM [Concomitant]
  3. LOMOTIL [Concomitant]
  4. FOLIC ACID [Concomitant]
  5. DIOVAN [Concomitant]
  6. PENTASA [Concomitant]
  7. TOPROL-XL [Concomitant]
  8. ENTOCORT EC [Concomitant]

REACTIONS (1)
  - TUBERCULOSIS [None]
